FAERS Safety Report 10576416 (Version 1)
Quarter: 2014Q4

REPORT INFORMATION
  Report Type: Report from Study
  Country: JP (occurrence: JP)
  Receive Date: 20141111
  Receipt Date: 20141111
  Transmission Date: 20150529
  Serious: Yes (Death)
  Sender: FDA-Public Use
  Company Number: JP-SA-2014SA153380

PATIENT
  Age: 74 Year
  Sex: Male

DRUGS (3)
  1. ESTRAMUSTINE [Concomitant]
     Active Substance: ESTRAMUSTINE
     Indication: PROSTATE CANCER
     Dosage: 560 MG/DAY/CYCLE, DAY 1-5, TOTAL 3 COURSES
  2. HYDROCORTISONE. [Concomitant]
     Active Substance: HYDROCORTISONE
     Indication: PROSTATE CANCER
     Dosage: 40 MG/DAY/CYCLE,  DAY 1-21, TOTAL 3 COURSES
  3. TAXOTERE [Suspect]
     Active Substance: DOCETAXEL
     Indication: PROSTATE CANCER
     Dosage: RECEIVED ON DAY 2 OF 21 DAY CYCLE
     Route: 042

REACTIONS (2)
  - Cell marker increased [Fatal]
  - Interstitial lung disease [Fatal]

NARRATIVE: CASE EVENT DATE: 201009
